FAERS Safety Report 8456034-3 (Version None)
Quarter: 2012Q2

REPORT INFORMATION
  Report Type: 
  Country: None (occurrence: None)
  Receive Date: 20120621
  Receipt Date: 20120614
  Transmission Date: 20120825
  Serious: Yes (Other)
  Sender: FDA-Public Use
  Company Number: PHHY2012AR046125

PATIENT
  Sex: Male

DRUGS (1)
  1. ONBREZ [Suspect]
     Indication: BRONCHIAL DISORDER
     Dosage: 300 UG, QW

REACTIONS (6)
  - BRONCHITIS [None]
  - NASOPHARYNGITIS [None]
  - INAPPROPRIATE SCHEDULE OF DRUG ADMINISTRATION [None]
  - FATIGUE [None]
  - COUGH [None]
  - INCREASED UPPER AIRWAY SECRETION [None]
